FAERS Safety Report 8728228 (Version 2)
Quarter: 2012Q4

REPORT INFORMATION
  Report Type: 
  Country: US (occurrence: US)
  Receive Date: 20120817
  Receipt Date: 20120911
  Transmission Date: 20130627
  Serious: Yes (Other)
  Sender: FDA-Public Use
  Company Number: US-PFIZER INC-2012199178

PATIENT
  Age: 63 Year
  Sex: Female

DRUGS (10)
  1. SUTENT [Suspect]
     Indication: RENAL CANCER
     Dosage: 37.5 mg, 1x/day
     Route: 048
     Dates: start: 20120510
  2. B12 [Concomitant]
     Dosage: UNK
  3. FOLIC ACID [Concomitant]
     Dosage: UNK
  4. LISINOPRIL [Concomitant]
  5. ATENOLOL [Concomitant]
  6. PERCOCET [Concomitant]
  7. COLACE [Concomitant]
  8. CYMBALTA [Concomitant]
  9. PRILOSEC [Concomitant]
  10. VENETLIN [Concomitant]
     Dosage: UNK
     Route: 055

REACTIONS (1)
  - Angioedema [Recovered/Resolved]
